FAERS Safety Report 4649284-5 (Version None)
Quarter: 2005Q2

REPORT INFORMATION
  Report Type: 
  Country: None (occurrence: None)
  Receive Date: 20050429
  Receipt Date: 20050131
  Transmission Date: 20051028
  Serious: Yes (Other)
  Sender: FDA-Public Use
  Company Number: US-MERCK-0502USA00109

PATIENT
  Age: 67 Year
  Sex: Female
  Weight: 75 kg

DRUGS (4)
  1. VIOXX [Suspect]
     Indication: RHEUMATOID ARTHRITIS
     Route: 048
     Dates: start: 20001101, end: 20020501
  2. PREDNISONE [Concomitant]
     Route: 065
  3. ENALAPRIL MALEATE [Concomitant]
     Route: 065
     Dates: start: 19950101
  4. GLIPIZIDE [Concomitant]
     Route: 065

REACTIONS (4)
  - CEREBROVASCULAR ACCIDENT [None]
  - DYSPEPSIA [None]
  - DYSPNOEA [None]
  - GASTRIC DISORDER [None]
